APPROVED DRUG PRODUCT: DEXTROAMPHETAMINE SULFATE
Active Ingredient: DEXTROAMPHETAMINE SULFATE
Strength: 5MG
Dosage Form/Route: CAPSULE, EXTENDED RELEASE;ORAL
Application: A076137 | Product #001
Applicant: SENORES PHARMACEUTICALS INC
Approved: Jan 18, 2002 | RLD: No | RS: No | Type: DISCN